FAERS Safety Report 7571942-3 (Version None)
Quarter: 2011Q2

REPORT INFORMATION
  Report Type: 
  Country: None (occurrence: None)
  Receive Date: 20110624
  Receipt Date: 20110216
  Transmission Date: 20111010
  Serious: No
  Sender: FDA-Public Use
  Company Number: A0913972A

PATIENT
  Age: 2 Year
  Sex: Male

DRUGS (1)
  1. VERAMYST [Suspect]
     Route: 065

REACTIONS (1)
  - DRUG ADMINISTRATION ERROR [None]
